FAERS Safety Report 19257960 (Version 1)
Quarter: 2021Q2

REPORT INFORMATION
  Report Type: Spontaneous
  Country: US (occurrence: US)
  Receive Date: 20210514
  Receipt Date: 20210514
  Transmission Date: 20210717
  Serious: No
  Sender: FDA-Public Use
  Company Number: None

PATIENT
  Age: 44 Year
  Sex: Male
  Weight: 143 kg

DRUGS (2)
  1. PROPOFOL (PROPOFOL 10MG/ML , EMULSION) [Suspect]
     Active Substance: PROPOFOL
     Indication: SURGERY
  2. VANCOMYCIN (VANCOMYCIN HCL 100MG/MLINJ) [Suspect]
     Active Substance: VANCOMYCIN HYDROCHLORIDE
     Indication: SURGERY

REACTIONS (4)
  - Bradycardia [None]
  - Anaphylactic reaction [None]
  - Bronchospasm [None]
  - Cardiac arrest [None]

NARRATIVE: CASE EVENT DATE: 20210224
